FAERS Safety Report 9019618 (Version 2)
Quarter: 2013Q2

REPORT INFORMATION
  Report Type: Report from Study
  Country: JP (occurrence: JP)
  Receive Date: 20130118
  Receipt Date: 20130607
  Transmission Date: 20140414
  Serious: Yes (Other)
  Sender: FDA-Public Use
  Company Number: JP-VERTEX PHARMACEUTICAL INC.-AE-2012-008934

PATIENT
  Age: 55 Year
  Sex: Male

DRUGS (10)
  1. VX-950 (TELAPREVIR) [Suspect]
     Indication: CHRONIC HEPATITIS C
     Dosage: 2250 MG, QD
     Route: 048
     Dates: start: 20120409, end: 20120624
  2. VX-950 (TELAPREVIR) [Suspect]
     Dosage: 1500 MG, QD
     Route: 048
     Dates: start: 20120625, end: 20120701
  3. RIBAVIRIN [Suspect]
     Indication: CHRONIC HEPATITIS C
     Dosage: 800 MG, QD
     Route: 048
     Dates: start: 20120409, end: 20120513
  4. RIBAVIRIN [Suspect]
     Dosage: 600 MG, QD
     Route: 048
     Dates: start: 20120514, end: 20120520
  5. RIBAVIRIN [Suspect]
     Dosage: 800 MG, QD
     Route: 048
     Dates: start: 20120521, end: 20120827
  6. PEGINTERFERON ALFA-2B [Concomitant]
     Dosage: 1.43 ?G/KG, QW
     Route: 058
     Dates: start: 20120409, end: 20120611
  7. PEGINTERFERON ALFA-2B [Concomitant]
     Dosage: 0.7 ?G/KG, QW
     Route: 058
     Dates: start: 20120618, end: 20120701
  8. PEGINTERFERON ALFA-2B [Concomitant]
     Dosage: 1.43 ?G/KG, QW
     Route: 058
     Dates: start: 20120702, end: 20120820
  9. JANUVIA [Concomitant]
     Dosage: 50 MG, QD
     Route: 048
     Dates: start: 20120507, end: 20120702
  10. MARZULENE [Concomitant]
     Dosage: 0.5 G/ DAY, PRN
     Route: 048
     Dates: start: 20120730

REACTIONS (1)
  - Rash [Recovered/Resolved]
